FAERS Safety Report 16903188 (Version 2)
Quarter: 2019Q4

REPORT INFORMATION
  Report Type: Spontaneous
  Country: AU (occurrence: AU)
  Receive Date: 20191010
  Receipt Date: 20191219
  Transmission Date: 20200122
  Serious: Yes (Other)
  Sender: FDA-Public Use
  Company Number: AU-SUNOVION-2019DSP012472

PATIENT
  Age: 76 Year
  Sex: Male

DRUGS (15)
  1. LATUDA [Suspect]
     Active Substance: LURASIDONE HYDROCHLORIDE
     Indication: PRODUCT USED FOR UNKNOWN INDICATION
     Dosage: 20 MG
     Route: 048
     Dates: start: 20190220, end: 20190226
  2. DUTASTERIDE;TAMSULOSIN [Concomitant]
     Dosage: 500/400 MICROGRAM IN THE MORNING
     Route: 065
  3. MIRTAZAPINE. [Concomitant]
     Active Substance: MIRTAZAPINE
     Dosage: IN THE EVENING
     Route: 065
  4. SITAGLIPTIN [Concomitant]
     Active Substance: SITAGLIPTIN
     Dosage: 50 MG, BID
     Route: 065
  5. METFORMIN [Concomitant]
     Active Substance: METFORMIN HYDROCHLORIDE
     Dosage: 1 G, BID
     Route: 065
  6. ATORVASTATIN [Concomitant]
     Active Substance: ATORVASTATIN
     Dosage: IN THE EVENING
     Route: 065
  7. ASPIRIN. [Concomitant]
     Active Substance: ASPIRIN
     Dosage: IN THE MORNING
     Route: 065
  8. DESVENLAFAXINE. [Concomitant]
     Active Substance: DESVENLAFAXINE
     Dosage: IN THE MORNING
     Route: 065
  9. POLYTEARS [Concomitant]
     Dosage: TDS BOTH EYES
     Route: 047
  10. OLANZAPINE. [Concomitant]
     Active Substance: OLANZAPINE
     Dosage: IN THE EVENING
     Route: 065
  11. MOVICOL [Concomitant]
     Active Substance: POLYETHYLENE GLYCOL 3350\POTASSIUM CHLORIDE\SODIUM BICARBONATE\SODIUM CHLORIDE
     Dosage: ONE SACHET
     Route: 065
  12. LATUDA [Suspect]
     Active Substance: LURASIDONE HYDROCHLORIDE
     Dosage: 40 MG
     Route: 048
     Dates: start: 20190227, end: 20190306
  13. LACTULOSE. [Concomitant]
     Active Substance: LACTULOSE
     Dosage: 20 ML, BID
     Route: 065
  14. MULTIVITAMIN [Concomitant]
     Active Substance: VITAMINS
     Dosage: ONE TAB IN THE MORNING
     Route: 065
  15. DOCUSATE;SENNA [Concomitant]
     Dosage: TWO TABLETS
     Route: 065

REACTIONS (6)
  - Rash [Unknown]
  - Thrombocytopenia [Unknown]
  - Eosinophilia [Recovered/Resolved]
  - Weight decreased [Unknown]
  - White blood cells urine positive [Unknown]
  - Abdominal distension [Unknown]

NARRATIVE: CASE EVENT DATE: 20190226
